FAERS Safety Report 9583663 (Version 2)
Quarter: 2013Q4

REPORT INFORMATION
  Report Type: Spontaneous
  Country: US (occurrence: US)
  Receive Date: 20131002
  Receipt Date: 20131002
  Transmission Date: 20140711
  Serious: No
  Sender: FDA-Public Use
  Company Number: US-AMGEN-USASP2013041782

PATIENT
  Age: 38 Year
  Sex: Female
  Weight: 97.96 kg

DRUGS (8)
  1. ENBREL [Suspect]
     Indication: RHEUMATOID ARTHRITIS
     Dosage: UNK UNK, QWK
     Route: 058
     Dates: start: 20130506
  2. PLAQUENIL                          /00072602/ [Concomitant]
     Indication: RHEUMATOID ARTHRITIS
     Dosage: 200 MG, BID
  3. LEFLUNOMIDE [Concomitant]
     Indication: RHEUMATOID ARTHRITIS
     Dosage: 70 MG, QD
  4. MELOXICAM [Concomitant]
     Indication: RHEUMATOID ARTHRITIS
     Dosage: 7.5 MG, QD
  5. MELOXICAM [Concomitant]
     Indication: ARTHRALGIA
  6. NORCO [Concomitant]
     Dosage: UNK 10/325 MG
  7. VIIBRYD [Concomitant]
     Dosage: 40 MG, QD
  8. NUCYNTA [Concomitant]
     Dosage: 200 MG, QD (ER)

REACTIONS (1)
  - Migraine [Recovered/Resolved]
